FAERS Safety Report 5305438-6 (Version None)
Quarter: 2007Q2

REPORT INFORMATION
  Report Type: 
  Country: None (occurrence: None)
  Receive Date: 20070416
  Receipt Date: 20070402
  Transmission Date: 20071010
  Serious: Yes (Hospitalization, Other)
  Sender: FDA-Public Use
  Company Number: 2007RR-06567

PATIENT
  Age: 70 Year
  Sex: Female

DRUGS (5)
  1. CIPROFLOXACIN [Suspect]
     Dosage: 800 MG, QD, INTRAVENOUS
     Route: 042
  2. OLANZAPINE [Suspect]
     Dosage: 10 MG, QD
  3. AZATHIOPINE [Concomitant]
  4. VALSARTAN (VALSARTAN) UNKNOWN [Concomitant]
  5. FUROSEMIDE [Concomitant]

REACTIONS (8)
  - BUNDLE BRANCH BLOCK LEFT [None]
  - DRUG INTERACTION [None]
  - ECHOCARDIOGRAM ABNORMAL [None]
  - EJECTION FRACTION DECREASED [None]
  - ELECTROCARDIOGRAM QT CORRECTED INTERVAL PROLONGED [None]
  - ELECTROCARDIOGRAM QT PROLONGED [None]
  - PNEUMONIA [None]
  - VENTRICULAR EXTRASYSTOLES [None]
